FAERS Safety Report 6087426-8 (Version None)
Quarter: 2009Q1

REPORT INFORMATION
  Report Type: 
  Country: None (occurrence: None)
  Receive Date: 20090223
  Receipt Date: 20090213
  Transmission Date: 20090719
  Serious: Yes (Other)
  Sender: FDA-Public Use
  Company Number: JP-MERCK-0902USA03008

PATIENT
  Age: 60 Year
  Sex: Male

DRUGS (9)
  1. PEPCID [Suspect]
     Indication: GASTRIC ULCER HAEMORRHAGE
     Route: 065
  2. DEXTROSE [Concomitant]
     Route: 065
  3. MENATETRENONE [Concomitant]
     Route: 065
  4. METOCLOPRAMIDE [Concomitant]
     Route: 065
  5. POTASSIUM CHLORIDE [Concomitant]
     Route: 065
  6. AMINOPHYLLINE [Concomitant]
     Route: 065
  7. VITAMINS (UNSPECIFIED) [Concomitant]
     Route: 065
  8. PIPERACILLIN SODIUM [Concomitant]
     Route: 065
  9. VANCOMYCIN HYDROCHLORIDE [Concomitant]
     Route: 065

REACTIONS (2)
  - BRADYCARDIA [None]
  - ELECTROCARDIOGRAM QT PROLONGED [None]
